FAERS Safety Report 9397064 (Version 1)
Quarter: 2013Q3

REPORT INFORMATION
  Report Type: Spontaneous
  Country: US (occurrence: US)
  Receive Date: 20130712
  Receipt Date: 20130712
  Transmission Date: 20140515
  Serious: No
  Sender: FDA-Public Use
  Company Number: US-PFIZER INC-2013205395

PATIENT
  Age: 49 Year
  Sex: Male
  Weight: 84.81 kg

DRUGS (2)
  1. CHANTIX [Suspect]
     Indication: SMOKING CESSATION THERAPY
     Dosage: UNK, 1X/DAY
     Route: 048
     Dates: start: 201306
  2. CHANTIX [Suspect]
     Dosage: 2 DF, 1X/DAY
     Route: 048
     Dates: start: 201306

REACTIONS (1)
  - Somnolence [Unknown]
